FAERS Safety Report 6310906-4 (Version None)
Quarter: 2009Q3

REPORT INFORMATION
  Report Type: 
  Country: None (occurrence: None)
  Receive Date: 20090812
  Receipt Date: 20090730
  Transmission Date: 20100115
  Serious: Yes (Other)
  Sender: FDA-Public Use
  Company Number: 2009SP017201

PATIENT
  Age: 31 Year
  Sex: Female
  Weight: 57 kg

DRUGS (6)
  1. MIRTAZAPINE [Suspect]
     Indication: DEPRESSION
     Dosage: 15 MG; PO
     Route: 048
     Dates: start: 20090516, end: 20090619
  2. FLUOXETINE [Suspect]
     Indication: DEPRESSION
     Dosage: 20 MG; PO
     Route: 048
     Dates: start: 20090516, end: 20090619
  3. DIAZEPAM (CON.) [Concomitant]
  4. NAPROXEN (CON.) [Concomitant]
  5. NITRAZEPAM (CON.) [Concomitant]
  6. OMEPRAZOLE (CON.) [Concomitant]

REACTIONS (4)
  - CARDIAC FAILURE [None]
  - CELLULITIS [None]
  - DEEP VEIN THROMBOSIS [None]
  - GAIT DISTURBANCE [None]
